FAERS Safety Report 16929875 (Version 3)
Quarter: 2020Q4

REPORT INFORMATION
  Report Type: Spontaneous
  Country: FR (occurrence: FR)
  Receive Date: 20191017
  Receipt Date: 20201012
  Transmission Date: 20210113
  Serious: Yes (Hospitalization, Other)
  Sender: FDA-Public Use
  Company Number: FR-JNJFOC-20191008868

PATIENT
  Age: 25 Year
  Sex: Female

DRUGS (1)
  1. HALDOL [Suspect]
     Active Substance: HALOPERIDOL
     Indication: PSYCHOTIC DISORDER
     Route: 048

REACTIONS (4)
  - Catatonia [Recovered/Resolved]
  - Extrapyramidal disorder [Recovered/Resolved]
  - Drug ineffective [Unknown]
  - Pneumonia aspiration [Unknown]
